FAERS Safety Report 22748780 (Version 2)
Quarter: 2023Q4

REPORT INFORMATION
  Report Type: Spontaneous
  Country: US (occurrence: US)
  Receive Date: 20230725
  Receipt Date: 20231120
  Transmission Date: 20240109
  Serious: Yes (Other)
  Sender: FDA-Public Use
  Company Number: US-PFIZER INC-202300254141

PATIENT
  Sex: Female

DRUGS (2)
  1. MANNITOL [Suspect]
     Active Substance: MANNITOL
     Indication: Anal incontinence
     Dosage: UNK
  2. MANNITOL [Suspect]
     Active Substance: MANNITOL
     Indication: Urinary incontinence

REACTIONS (5)
  - Mental impairment [Unknown]
  - Amnesia [Unknown]
  - Mental disorder [Unknown]
  - Musculoskeletal disorder [Unknown]
  - Off label use [Unknown]
